FAERS Safety Report 24884830 (Version 3)
Quarter: 2025Q1

REPORT INFORMATION
  Report Type: Spontaneous
  Country: US (occurrence: US)
  Receive Date: 20250124
  Receipt Date: 20250312
  Transmission Date: 20250408
  Serious: No
  Sender: SANOFI AVENTIS
  Company Number: US-SA-2025SA022269

PATIENT
  Age: 53 Year
  Sex: Female

DRUGS (1)
  1. DUPIXENT [Suspect]
     Active Substance: DUPILUMAB
     Indication: Eosinophilic oesophagitis
     Dosage: 300 MG, QW
     Route: 058
     Dates: start: 20250113, end: 202502

REACTIONS (8)
  - COVID-19 [Recovering/Resolving]
  - Cough [Recovered/Resolved]
  - Myalgia [Unknown]
  - Headache [Unknown]
  - Eczema [Recovering/Resolving]
  - Urticaria [Unknown]
  - Rash pruritic [Recovering/Resolving]
  - Dry eye [Recovering/Resolving]

NARRATIVE: CASE EVENT DATE: 20250101
